FAERS Safety Report 4948634-X (Version None)
Quarter: 2006Q1

REPORT INFORMATION
  Report Type: 
  Country: None (occurrence: None)
  Receive Date: 20060313
  Receipt Date: 20060302
  Transmission Date: 20060701
  Serious: Yes (Hospitalization)
  Sender: FDA-Public Use
  Company Number: ST-2006-008862

PATIENT
  Age: 66 Year
  Sex: Male

DRUGS (4)
  1. OLMETEC [Suspect]
     Indication: HYPERTENSION
     Dosage: 20 MG QD PO
     Route: 048
     Dates: start: 20060128, end: 20060201
  2. ALDACTONE [Suspect]
     Indication: HYPERTENSION
     Dosage: 25 MG QD PO
     Route: 048
     Dates: end: 20060201
  3. LASIX [Concomitant]
  4. ADALAT [Concomitant]

REACTIONS (3)
  - DRUG INTERACTION [None]
  - HYPERKALAEMIA [None]
  - RENAL FAILURE ACUTE [None]
